FAERS Safety Report 11241642 (Version 1)
Quarter: 2015Q3

REPORT INFORMATION
  Report Type: Spontaneous
  Country: FR (occurrence: FR)
  Receive Date: 20150706
  Receipt Date: 20150706
  Transmission Date: 20151125
  Serious: Yes (Hospitalization, Other)
  Sender: FDA-Public Use
  Company Number: FR-BAXTER-2015BAX035223

PATIENT
  Age: 78 Year
  Sex: Female

DRUGS (12)
  1. ENDOXAN 50 MG, COMPRIM? ENROB? [Suspect]
     Active Substance: CYCLOPHOSPHAMIDE
     Indication: PEMPHIGOID
     Route: 048
     Dates: start: 20150219, end: 20150409
  2. DISULONE [Suspect]
     Active Substance: DAPSONE\FERROUS OXALATE
     Indication: PEMPHIGOID
     Route: 048
     Dates: start: 20150213, end: 20150506
  3. MABTHERA [Suspect]
     Active Substance: RITUXIMAB
     Indication: PEMPHIGOID
     Route: 042
     Dates: start: 20150325, end: 20150325
  4. ATORVASTATIN [Concomitant]
     Active Substance: ATORVASTATIN
     Indication: DRUG THERAPY
     Route: 065
  5. KARDEGIC [Concomitant]
     Active Substance: ASPIRIN LYSINE
     Indication: DRUG THERAPY
     Route: 065
     Dates: end: 201505
  6. LERCAN [Concomitant]
     Active Substance: LERCANIDIPINE
     Indication: DRUG THERAPY
     Route: 065
     Dates: end: 201505
  7. DIGOXIN. [Concomitant]
     Active Substance: DIGOXIN
     Indication: DRUG THERAPY
     Route: 065
     Dates: end: 201506
  8. CACIT D3 [Concomitant]
     Active Substance: CALCIUM\CHOLECALCIFEROL
     Indication: DRUG THERAPY
     Route: 065
     Dates: end: 201505
  9. INEXIUM [Concomitant]
     Active Substance: ESOMEPRAZOLE
     Indication: DRUG THERAPY
     Route: 065
     Dates: end: 201505
  10. MABTHERA [Suspect]
     Active Substance: RITUXIMAB
     Route: 042
     Dates: start: 20150409, end: 20150409
  11. CARBIMAZOLE [Concomitant]
     Active Substance: CARBIMAZOLE
     Indication: BONE MARROW FAILURE
     Route: 065
     Dates: start: 1990
  12. DIFFU-K [Concomitant]
     Active Substance: POTASSIUM CHLORIDE
     Indication: DRUG THERAPY
     Route: 065

REACTIONS (5)
  - Bone marrow failure [Not Recovered/Not Resolved]
  - Pyrexia [Unknown]
  - Treatment failure [Unknown]
  - Hepatotoxicity [Unknown]
  - Cellulitis [Unknown]

NARRATIVE: CASE EVENT DATE: 20150506
